FAERS Safety Report 6714063-1 (Version None)
Quarter: 2010Q2

REPORT INFORMATION
  Report Type: 
  Country: None (occurrence: None)
  Receive Date: 20100506
  Receipt Date: 20100330
  Transmission Date: 20101027
  Serious: Yes (Hospitalization, Other)
  Sender: FDA-Public Use
  Company Number: JP-BAYER-200910960BYL

PATIENT
  Age: 66 Year
  Sex: Male
  Weight: 57 kg

DRUGS (14)
  1. NEXAVAR [Suspect]
     Indication: RENAL CELL CARCINOMA
     Dosage: UNIT DOSE: 200 MG
     Route: 048
     Dates: start: 20080617, end: 20090123
  2. NEXAVAR [Suspect]
     Dosage: UNIT DOSE: 200 MG
     Route: 048
     Dates: start: 20090221
  3. TAKEPRON [Concomitant]
     Route: 048
     Dates: start: 20080606, end: 20080818
  4. HALCION [Concomitant]
     Route: 048
     Dates: start: 20080529
  5. OXYCONTIN [Concomitant]
     Route: 048
     Dates: start: 20080612, end: 20080616
  6. ALOSENN [Concomitant]
     Route: 048
     Dates: start: 20080612, end: 20080618
  7. ALOSENN [Concomitant]
     Route: 048
     Dates: start: 20081017, end: 20081208
  8. DECADRON [Concomitant]
     Route: 048
     Dates: start: 20080612
  9. MYSLEE [Concomitant]
     Route: 048
     Dates: start: 20080613, end: 20080615
  10. DUROTEP [Concomitant]
     Route: 062
     Dates: start: 20080620, end: 20091210
  11. NORVASC [Concomitant]
     Route: 048
     Dates: start: 20080624, end: 20090112
  12. OLMESARTAN MEDOXOMIL [Concomitant]
     Route: 048
     Dates: start: 20080624, end: 20090112
  13. DOXAZOSIN MESYLATE [Concomitant]
     Route: 048
     Dates: start: 20080722, end: 20080915
  14. DOXAZOSIN MESYLATE [Concomitant]
     Route: 048
     Dates: start: 20080916, end: 20090112

REACTIONS (5)
  - CONSTIPATION [None]
  - DYSPHONIA [None]
  - NEUROPATHY PERIPHERAL [None]
  - PALMAR-PLANTAR ERYTHRODYSAESTHESIA SYNDROME [None]
  - TUMOUR EXCISION [None]
